FAERS Safety Report 7561435-1 (Version None)
Quarter: 2011Q2

REPORT INFORMATION
  Report Type: 
  Country: None (occurrence: None)
  Receive Date: 20110621
  Receipt Date: 20110418
  Transmission Date: 20111010
  Serious: No
  Sender: FDA-Public Use
  Company Number: US-ASTRAZENECA-2011SE22185

PATIENT
  Sex: Female

DRUGS (4)
  1. XOPENEX [Concomitant]
     Route: 055
  2. ALBUTEROL SULFATE AUTOHALER [Concomitant]
     Route: 055
  3. PULMICORT FLEXHALER [Suspect]
     Dosage: 180 MCG
     Route: 055
     Dates: start: 20110404, end: 20110418
  4. SYMBICORT [Suspect]
     Route: 055
     Dates: end: 20110404

REACTIONS (4)
  - RASH GENERALISED [None]
  - DECREASED APPETITE [None]
  - ORAL CANDIDIASIS [None]
  - FLUSHING [None]
